FAERS Safety Report 10147851 (Version 1)
Quarter: 2014Q2

REPORT INFORMATION
  Report Type: Spontaneous
  Country: US (occurrence: US)
  Receive Date: 20140501
  Receipt Date: 20140501
  Transmission Date: 20141212
  Serious: No
  Sender: FDA-Public Use
  Company Number: US-AMGEN-USASP2014025201

PATIENT
  Age: 63 Year
  Sex: Male

DRUGS (1)
  1. ENBREL [Suspect]
     Indication: RHEUMATOID ARTHRITIS
     Dosage: 50 MG, QWK
     Route: 065
     Dates: start: 201403, end: 201404

REACTIONS (3)
  - Abdominal discomfort [Not Recovered/Not Resolved]
  - Limb discomfort [Not Recovered/Not Resolved]
  - Grip strength decreased [Not Recovered/Not Resolved]
